FAERS Safety Report 7230916-2 (Version None)
Quarter: 2011Q1

REPORT INFORMATION
  Report Type: 
  Country: None (occurrence: None)
  Receive Date: 20110118
  Receipt Date: 20110106
  Transmission Date: 20110831
  Serious: Yes (Hospitalization, Other)
  Sender: FDA-Public Use
  Company Number: US-ROCHE-731302

PATIENT
  Sex: Female
  Weight: 106.6 kg

DRUGS (2)
  1. ACCUTANE [Suspect]
     Indication: ACNE
     Route: 065
     Dates: start: 19900101, end: 19910101
  2. ACCUTANE [Suspect]
     Route: 065
     Dates: start: 19920101

REACTIONS (9)
  - INFLAMMATORY BOWEL DISEASE [None]
  - GASTRIC ULCER [None]
  - GASTROINTESTINAL INJURY [None]
  - DEPRESSION [None]
  - COLITIS ULCERATIVE [None]
  - HEADACHE [None]
  - IRON DEFICIENCY ANAEMIA [None]
  - VOLVULUS [None]
  - COLONIC POLYP [None]
